FAERS Safety Report 5051775-2 (Version None)
Quarter: 2006Q3

REPORT INFORMATION
  Report Type: 
  Country: None (occurrence: None)
  Receive Date: 20060712
  Receipt Date: 20060712
  Transmission Date: 20061208
  Serious: Yes (Other)
  Sender: FDA-Public Use
  Company Number: None

PATIENT
  Age: 59 Year
  Sex: Male
  Weight: 81.6 kg

DRUGS (15)
  1. FENTANYL [Suspect]
  2. HYPROMELLOSE [Concomitant]
  3. GABAPENTIN [Concomitant]
  4. LIDOCAINE [Concomitant]
  5. METFORMIN HYDROCHLORIDE [Concomitant]
  6. MECLIZINE HCL [Concomitant]
  7. HYDROCODONE 5/ACETAMINOPHEN [Concomitant]
  8. MISOPROSTOL [Concomitant]
  9. DILANTIN [Concomitant]
  10. CLONAZEPAM [Concomitant]
  11. CETYLPYRDINIUM 0.07%/MENTHOL 2MG LOZ [Concomitant]
  12. VITAMIN B COMPLEX/VITAMIN C [Concomitant]
  13. ASPIRIN [Concomitant]
  14. CLOTRIMAZOLE [Concomitant]
  15. DOCUSATE NA 50MG/SENNOSIDES [Concomitant]

REACTIONS (2)
  - NAUSEA [None]
  - VOMITING [None]
